FAERS Safety Report 4266739-6 (Version None)
Quarter: 2004Q1

REPORT INFORMATION
  Report Type: 
  Country: None (occurrence: None)
  Receive Date: 20040108
  Receipt Date: 20040102
  Transmission Date: 20041129
  Serious: Yes (Hospitalization)
  Sender: FDA-Public Use
  Company Number: FR-GLAXOSMITHKLINE-B0318767A

PATIENT
  Age: 54 Year
  Sex: Female

DRUGS (6)
  1. NARAMIG [Suspect]
     Indication: MIGRAINE
     Dosage: 6UNIT WEEKLY
     Route: 048
     Dates: start: 19950615, end: 20031118
  2. MOTILIUM [Suspect]
     Indication: MIGRAINE
     Dosage: 8UNIT PER DAY
     Route: 048
     Dates: start: 19950615, end: 20031118
  3. LEXOMIL [Suspect]
     Indication: MIGRAINE
     Dosage: 4UNIT PER DAY
     Route: 048
     Dates: start: 19950615, end: 20031118
  4. STILNOX [Suspect]
     Dosage: 2UNIT PER DAY
     Dates: start: 19950615, end: 20031118
  5. PROPOFAN [Suspect]
     Indication: MIGRAINE
     Dosage: 12UNIT PER DAY
     Route: 048
     Dates: start: 19950615, end: 20031118
  6. PROZAC [Concomitant]
     Indication: DEPRESSION
     Route: 048

REACTIONS (9)
  - ASTHENIA [None]
  - DEPRESSION [None]
  - DIFFICULTY IN WALKING [None]
  - DRUG ABUSER [None]
  - DRUG WITHDRAWAL SYNDROME [None]
  - HYPERAESTHESIA [None]
  - INSOMNIA [None]
  - NAUSEA [None]
  - TENSION HEADACHE [None]
